FAERS Safety Report 16914158 (Version 6)
Quarter: 2020Q2

REPORT INFORMATION
  Report Type: Report from Study
  Country: DE (occurrence: DE)
  Receive Date: 20191014
  Receipt Date: 20200507
  Transmission Date: 20200713
  Serious: Yes (Hospitalization)
  Sender: FDA-Public Use
  Company Number: DE-EISAI MEDICAL RESEARCH-EC-2019-063413

PATIENT
  Age: 67 Year
  Sex: Male
  Weight: 140 kg

DRUGS (13)
  1. CANDESARTAN. [Concomitant]
     Active Substance: CANDESARTAN
  2. BISOHEXAL [Concomitant]
     Active Substance: BISOPROLOL FUMARATE
  3. LENVATINIB [Suspect]
     Active Substance: LENVATINIB
     Route: 048
     Dates: start: 20191024
  4. BONDIOL [Concomitant]
     Active Substance: ALFACALCIDOL
  5. CALCIUM [Concomitant]
     Active Substance: CALCIUM
  6. SULPIRID [Concomitant]
     Active Substance: SULPIRIDE
  7. DIGITOXIN [Concomitant]
     Active Substance: DIGITOXIN
  8. MARCUMAR [Concomitant]
     Active Substance: PHENPROCOUMON
  9. LENVATINIB [Suspect]
     Active Substance: LENVATINIB
     Indication: THYROID CANCER
     Route: 048
     Dates: start: 20190312, end: 20191017
  10. ALPRAZOLAM. [Concomitant]
     Active Substance: ALPRAZOLAM
  11. L-THYROX [Concomitant]
     Active Substance: LEVOTHYROXINE SODIUM
  12. PANTOZOLE [Concomitant]
     Active Substance: PANTOPRAZOLE SODIUM
  13. ZOPICLON [Concomitant]
     Active Substance: ZOPICLONE

REACTIONS (1)
  - Pneumonia bacterial [Recovered/Resolved]

NARRATIVE: CASE EVENT DATE: 20191004
